FAERS Safety Report 5720549-9 (Version None)
Quarter: 2008Q2

REPORT INFORMATION
  Report Type: 
  Country: None (occurrence: None)
  Receive Date: 20080424
  Receipt Date: 20080424
  Transmission Date: 20081010
  Serious: No
  Sender: FDA-Public Use
  Company Number: None

PATIENT
  Age: 61 Year
  Sex: Male
  Weight: 175 kg

DRUGS (3)
  1. TOPIRAMATE [Suspect]
     Indication: LUMBAR RADICULOPATHY
     Dosage: 25 MG  BID  PO
     Route: 048
     Dates: start: 20070904, end: 20080409
  2. TOPIRAMATE [Suspect]
     Indication: NEURALGIA
     Dosage: 25 MG  BID  PO
     Route: 048
     Dates: start: 20070904, end: 20080409
  3. TOPIRAMATE [Suspect]
     Indication: PAIN
     Dosage: 25 MG  BID  PO
     Route: 048
     Dates: start: 20070904, end: 20080409

REACTIONS (1)
  - DRUG INTOLERANCE [None]
